FAERS Safety Report 17896452 (Version 1)
Quarter: 2020Q2

REPORT INFORMATION
  Report Type: Spontaneous
  Country: CN (occurrence: CN)
  Receive Date: 20200615
  Receipt Date: 20200615
  Transmission Date: 20200714
  Serious: Yes (Other)
  Sender: FDA-Public Use
  Company Number: CN-ROCHE-2622025

PATIENT
  Age: 53 Year
  Sex: Female
  Weight: 44 kg

DRUGS (4)
  1. CALCIUM FOLINATE [Concomitant]
     Active Substance: LEUCOVORIN CALCIUM
     Indication: RECTAL ADENOCARCINOMA
     Dosage: DAY1
     Route: 065
     Dates: start: 20200220
  2. FLUOROURACIL. [Concomitant]
     Active Substance: FLUOROURACIL
     Indication: RECTAL ADENOCARCINOMA
     Dosage: INTRAVENOUS INJECTION 0.5 (UNIT WAS NOT REPORTED) ON DAY1 AND CONTINUOUS INTRAVENOUS INJECTION OF 3.
     Route: 065
     Dates: start: 20200220
  3. AVASTIN [Suspect]
     Active Substance: BEVACIZUMAB
     Indication: RECTAL ADENOCARCINOMA
     Dosage: DAY1
     Route: 042
     Dates: start: 20200220
  4. IRINOTECAN [Concomitant]
     Active Substance: IRINOTECAN

REACTIONS (2)
  - Bone marrow failure [Unknown]
  - White blood cell count decreased [Unknown]
